FAERS Safety Report 21493429 (Version 1)
Quarter: 2022Q4

REPORT INFORMATION
  Report Type: Other
  Country: CA (occurrence: CA)
  Receive Date: 20221021
  Receipt Date: 20221021
  Transmission Date: 20230113
  Serious: Yes (Other)
  Sender: FDA-Public Use
  Company Number: CA-GLENMARK PHARMACEUTICALS-2022GMK074295

PATIENT

DRUGS (3)
  1. TOPIRAMATE [Suspect]
     Active Substance: TOPIRAMATE
     Indication: Migraine
     Dosage: UNK
     Route: 065
  2. GABAPENTIN [Suspect]
     Active Substance: GABAPENTIN
     Indication: Migraine
     Dosage: UNK
     Route: 065
  3. GABAPENTIN [Concomitant]
     Active Substance: GABAPENTIN
     Indication: Product used for unknown indication
     Dosage: UNK
     Route: 065

REACTIONS (20)
  - Fall [Unknown]
  - Hyperacusis [Unknown]
  - Neck pain [Unknown]
  - Post concussion syndrome [Unknown]
  - Tunnel vision [Unknown]
  - Balance disorder [Unknown]
  - Headache [Unknown]
  - Back pain [Unknown]
  - Tinnitus [Unknown]
  - Aphasia [Unknown]
  - Irritability [Unknown]
  - Disturbance in attention [Unknown]
  - Drug ineffective [Unknown]
  - Arthralgia [Unknown]
  - Fatigue [Unknown]
  - Insomnia [Unknown]
  - Memory impairment [Unknown]
  - Nausea [Unknown]
  - Speech disorder [Unknown]
  - Product use in unapproved indication [Unknown]
